FAERS Safety Report 8285887-7 (Version None)
Quarter: 2012Q2

REPORT INFORMATION
  Report Type: 
  Country: None (occurrence: None)
  Receive Date: 20120414
  Receipt Date: 20101026
  Transmission Date: 20120825
  Serious: Yes (Death)
  Sender: FDA-Public Use
  Company Number: PHHY2010TH093761

PATIENT
  Sex: Male

DRUGS (1)
  1. GLEEVEC [Suspect]
     Indication: GASTROINTESTINAL STROMAL TUMOUR

REACTIONS (7)
  - APHAGIA [None]
  - MUSCULAR WEAKNESS [None]
  - SWELLING [None]
  - FATIGUE [None]
  - ASTHENIA [None]
  - FLATULENCE [None]
  - DEATH [None]
